FAERS Safety Report 10052115 (Version 1)
Quarter: 2014Q2

REPORT INFORMATION
  Report Type: Spontaneous
  Country: US (occurrence: None)
  Receive Date: 20140401
  Receipt Date: 20140401
  Transmission Date: 20141212
  Serious: No
  Sender: FDA-Public Use
  Company Number: None

PATIENT
  Age: 76 Year
  Sex: Female
  Weight: 53.98 kg

DRUGS (2)
  1. RAMIPRIL [Suspect]
     Indication: HYPERTENSION
     Dates: start: 20140122, end: 20140214
  2. ALTACE [Suspect]

REACTIONS (4)
  - Choking [None]
  - Cough [None]
  - Productive cough [None]
  - Product substitution issue [None]
